FAERS Safety Report 24309282 (Version 1)
Quarter: 2024Q3

REPORT INFORMATION
  Report Type: Report from Study
  Country: US (occurrence: None)
  Receive Date: 20240911
  Receipt Date: 20240911
  Transmission Date: 20241016
  Serious: Yes (Other)
  Sender: ASTRAZENECA
  Company Number: 2024A203045

PATIENT
  Sex: Male
  Weight: 65.3 kg

DRUGS (5)
  1. KOSELUGO [Suspect]
     Active Substance: SELUMETINIB
     Indication: Neoplasm malignant
     Route: 048
  2. MEBENDAZOLE [Concomitant]
     Active Substance: MEBENDAZOLE
  3. ATORVASTATIN [Concomitant]
     Active Substance: ATORVASTATIN
  4. PRILOSEC [Concomitant]
     Active Substance: OMEPRAZOLE MAGNESIUM
  5. MUPIROCIN CALCIUM [Concomitant]
     Active Substance: MUPIROCIN CALCIUM

REACTIONS (2)
  - Malignant neoplasm progression [Recovered/Resolved]
  - Haematochezia [Unknown]
